FAERS Safety Report 4482591-8 (Version None)
Quarter: 2004Q4

REPORT INFORMATION
  Report Type: 
  Country: None (occurrence: None)
  Receive Date: 20041022
  Receipt Date: 20041011
  Transmission Date: 20050328
  Serious: Yes (Hospitalization)
  Sender: FDA-Public Use
  Company Number: FR-JNJFOC-20041003330

PATIENT
  Age: 74 Year
  Sex: Female

DRUGS (1)
  1. REMINYL [Suspect]
     Route: 049
     Dates: end: 20040713

REACTIONS (10)
  - ABDOMINAL PAIN UPPER [None]
  - APHAGIA [None]
  - CHEST PAIN [None]
  - ERUCTATION [None]
  - HICCUPS [None]
  - NAUSEA [None]
  - NECROTISING OESOPHAGITIS [None]
  - OESOPHAGEAL STENOSIS [None]
  - OESOPHAGEAL ULCER [None]
  - WEIGHT DECREASED [None]
